FAERS Safety Report 14413126 (Version 1)
Quarter: 2018Q1

REPORT INFORMATION
  Report Type: Spontaneous
  Country: US (occurrence: US)
  Receive Date: 20180119
  Receipt Date: 20180119
  Transmission Date: 20180509
  Serious: Yes (Hospitalization)
  Sender: FDA-Public Use
  Company Number: None

PATIENT
  Age: 25 Year
  Sex: Male
  Weight: 84.4 kg

DRUGS (9)
  1. INTUNIV [Concomitant]
     Active Substance: GUANFACINE HYDROCHLORIDE
  2. DEPADE [Concomitant]
  3. PHENERGAN [Suspect]
     Active Substance: PROMETHAZINE HYDROCHLORIDE
     Indication: NAUSEA
     Dosage: DATES OF USE - RECENT?FREQUENCY - Q4HRS PRN N+V X 1
     Route: 042
  4. LAMICTAL [Concomitant]
     Active Substance: LAMOTRIGINE
  5. PHENERGAN [Suspect]
     Active Substance: PROMETHAZINE HYDROCHLORIDE
     Indication: NAUSEA
     Dosage: DATES OF USE - RECENT?FREQUENCY - Q4HRS PRON N+V X2
     Route: 042
  6. PHENERGAN [Suspect]
     Active Substance: PROMETHAZINE HYDROCHLORIDE
     Indication: VOMITING
     Dosage: DATES OF USE - RECENT?FREQUENCY - Q4HRS PRON N+V X2
     Route: 042
  7. PHENERGAN [Suspect]
     Active Substance: PROMETHAZINE HYDROCHLORIDE
     Indication: VOMITING
     Dosage: DATES OF USE - RECENT?FREQUENCY - Q4HRS PRN N+V X 1
     Route: 042
  8. GABAPENTIN. [Concomitant]
     Active Substance: GABAPENTIN
  9. BUSPIRONE [Concomitant]
     Active Substance: BUSPIRONE HYDROCHLORIDE

REACTIONS (4)
  - Rhabdomyolysis [None]
  - Acute kidney injury [None]
  - Neuroleptic malignant syndrome [None]
  - Encephalopathy [None]

NARRATIVE: CASE EVENT DATE: 20170930
